FAERS Safety Report 5730735 (Version 3)
Quarter: 2017Q1

REPORT INFORMATION
  Report Type: Spontaneous
  Country: JP (occurrence: JP)
  Receive Date: 20050207
  Receipt Date: 20170214
  Transmission Date: 20170429
  Serious: Yes (Other)
  Sender: FDA-Public Use
  Company Number: JP-BRISTOL-MYERS SQUIBB COMPANY-12844767

PATIENT
  Sex: Male

DRUGS (3)
  1. BLEOMYCIN SULFATE [Concomitant]
     Active Substance: BLEOMYCIN SULFATE
     Indication: TESTIS CANCER
     Dosage: 30 MG, UNK
     Route: 042
  2. ETOPOSIDE. [Suspect]
     Active Substance: ETOPOSIDE
     Indication: TESTIS CANCER
     Dosage: 100 MG/M2, UNK
     Route: 042
  3. BRIPLATIN [Suspect]
     Active Substance: CISPLATIN
     Indication: TESTIS CANCER
     Dosage: 20 MG/M2, UNK
     Route: 042

REACTIONS (1)
  - Thrombosis [Unknown]

NARRATIVE: CASE EVENT DATE: 20050120
